FAERS Safety Report 19562531 (Version 2)
Quarter: 2021Q3

REPORT INFORMATION
  Report Type: Spontaneous
  Country: JP (occurrence: JP)
  Receive Date: 20210716
  Receipt Date: 20210728
  Transmission Date: 20211014
  Serious: Yes (Hospitalization, Other)
  Sender: FDA-Public Use
  Company Number: NVSJ2021JP010651

PATIENT
  Age: 45 Year
  Sex: Female
  Weight: 53 kg

DRUGS (4)
  1. MONTELUKAST [Concomitant]
     Active Substance: MONTELUKAST SODIUM
     Indication: ASTHMA
     Dosage: 10 MG
     Route: 065
  2. ENERZAIR [Suspect]
     Active Substance: GLYCOPYRROLATE\INDACATEROL\MOMETASONE FUROATE
     Indication: ASTHMA
     Dosage: 1 DF, QD
     Route: 055
     Dates: start: 202009
  3. BENRALIZUMAB. [Concomitant]
     Active Substance: BENRALIZUMAB
     Indication: ASTHMA
     Dosage: UNK
     Route: 065
     Dates: start: 2019
  4. THEOPHYLLIN [Concomitant]
     Active Substance: THEOPHYLLINE ANHYDROUS
     Indication: ASTHMA
     Dosage: 400 MG
     Route: 065

REACTIONS (3)
  - Asthma [Recovered/Resolved]
  - Pneumonia [Unknown]
  - Pneumothorax [Unknown]

NARRATIVE: CASE EVENT DATE: 202104
